FAERS Safety Report 12797544 (Version 1)
Quarter: 2016Q3

REPORT INFORMATION
  Report Type: Report from Study
  Country: US (occurrence: US)
  Receive Date: 20160930
  Receipt Date: 20160930
  Transmission Date: 20161109
  Serious: Yes (Other)
  Sender: FDA-Public Use
  Company Number: US-ROCHE-1007619

PATIENT

DRUGS (2)
  1. RITUXIMAB [Suspect]
     Active Substance: RITUXIMAB
     Indication: HAIRY CELL LEUKAEMIA
     Route: 042
  2. CLADRIBINE. [Suspect]
     Active Substance: CLADRIBINE
     Indication: HAIRY CELL LEUKAEMIA
     Route: 042

REACTIONS (13)
  - Cellulitis [Unknown]
  - Pancreatic carcinoma [Unknown]
  - Chronic lymphocytic leukaemia [Unknown]
  - Fatigue [Unknown]
  - Febrile neutropenia [Unknown]
  - Basal cell carcinoma [Unknown]
  - Pneumonia [Unknown]
  - Oesophageal carcinoma [Unknown]
  - Malignant melanoma [Unknown]
  - Herpes zoster [Unknown]
  - Rash [Unknown]
  - Hyperbilirubinaemia [Unknown]
  - Lung neoplasm malignant [Unknown]
